FAERS Safety Report 5242880-6 (Version None)
Quarter: 2007Q1

REPORT INFORMATION
  Report Type: 
  Country: None (occurrence: None)
  Receive Date: 20070221
  Receipt Date: 20070216
  Transmission Date: 20070707
  Serious: Yes (Hospitalization)
  Sender: FDA-Public Use
  Company Number: US-ELI_LILLY_AND_COMPANY-US200702001295

PATIENT
  Age: 7 Year
  Sex: Female

DRUGS (4)
  1. SOMATROPIN [Suspect]
     Dates: start: 19990924
  2. SYNTHROID [Concomitant]
     Indication: HYPOTHYROIDISM
     Dates: start: 19990810
  3. CORTEF [Concomitant]
     Indication: DYSPLASIA
     Dates: start: 19990810
  4. TRILEPTAL [Concomitant]
     Indication: CONVULSION
     Dates: start: 20060922, end: 20061105

REACTIONS (1)
  - THERAPEUTIC AGENT TOXICITY [None]
